FAERS Safety Report 5719828-0 (Version None)
Quarter: 2008Q2

REPORT INFORMATION
  Report Type: 
  Country: None (occurrence: None)
  Receive Date: 20080428
  Receipt Date: 20080421
  Transmission Date: 20081010
  Serious: Yes (Hospitalization, Other)
  Sender: FDA-Public Use
  Company Number: US-MERCK-0804USA01049

PATIENT
  Age: 41 Year
  Sex: Female

DRUGS (8)
  1. SINGULAIR [Suspect]
     Route: 048
  2. VARENICLINE TARTRATE [Suspect]
     Route: 048
  3. VARENICLINE TARTRATE [Suspect]
     Route: 048
  4. WELLBUTRIN [Concomitant]
     Route: 065
  5. RIVOTRIL [Concomitant]
     Route: 065
  6. TRILEPTAL [Concomitant]
     Route: 065
  7. SEROQUEL [Concomitant]
     Indication: INSOMNIA
     Route: 065
  8. PANTOPRAZOLE [Concomitant]
     Route: 065

REACTIONS (18)
  - AGGRESSION [None]
  - AGITATION [None]
  - ANGER [None]
  - CRYING [None]
  - DEPRESSION [None]
  - FEELING ABNORMAL [None]
  - FLIGHT OF IDEAS [None]
  - FORMICATION [None]
  - HYPOMANIA [None]
  - INSOMNIA [None]
  - IRRITABILITY [None]
  - NASOPHARYNGITIS [None]
  - PARAESTHESIA [None]
  - SCREAMING [None]
  - SELF INJURIOUS BEHAVIOUR [None]
  - SUICIDAL BEHAVIOUR [None]
  - SUICIDAL IDEATION [None]
  - TENSION [None]
